FAERS Safety Report 7842454-4 (Version None)
Quarter: 2011Q4

REPORT INFORMATION
  Report Type: 
  Country: None (occurrence: None)
  Receive Date: 20111025
  Receipt Date: 20111019
  Transmission Date: 20120403
  Serious: Yes (Hospitalization, Other)
  Sender: FDA-Public Use
  Company Number: PHEH2011US02013

PATIENT
  Age: 66 Year
  Sex: Female
  Weight: 54.422 kg

DRUGS (2)
  1. TOBI [Suspect]
     Dosage: 300 MG, TWICE A DAY FOR 28 DAYS, THEN STOP DRUG FOR 28 DAYS
  2. TOBI [Suspect]
     Dosage: 300 MG, TWICE A DAY FOR 28 DAYS, THEN STOP DRUG FOR 28 DAYS
     Dates: start: 20110630

REACTIONS (5)
  - PSEUDOMONAS INFECTION [None]
  - DYSPHONIA [None]
  - UPPER RESPIRATORY TRACT INFECTION [None]
  - BRONCHIAL IRRITATION [None]
  - THROAT IRRITATION [None]
